FAERS Safety Report 4579731-9 (Version None)
Quarter: 2005Q1

REPORT INFORMATION
  Report Type: 
  Country: None (occurrence: None)
  Receive Date: 20050210
  Receipt Date: 20050131
  Transmission Date: 20050727
  Serious: Yes (Hospitalization)
  Sender: FDA-Public Use
  Company Number: 200510422BCC

PATIENT
  Age: 84 Year
  Sex: Female
  Weight: 70.3075 kg

DRUGS (7)
  1. ASPIRIN [Suspect]
     Dosage: SEE IMAGE
     Route: 048
     Dates: start: 20040903, end: 20040904
  2. ASPIRIN [Suspect]
     Dosage: SEE IMAGE
     Route: 048
     Dates: start: 20040907, end: 20041001
  3. ASPIRIN [Suspect]
     Dosage: SEE IMAGE
     Route: 048
     Dates: start: 20050117
  4. CELEBREX [Concomitant]
  5. FOSAMAX [Concomitant]
  6. PROTONIX [Concomitant]
  7. LIBRIUM [Concomitant]

REACTIONS (2)
  - CONTUSION [None]
  - DIVERTICULUM [None]
